FAERS Safety Report 13065015 (Version 2)
Quarter: 2017Q2

REPORT INFORMATION
  Report Type: Spontaneous
  Country: US (occurrence: US)
  Receive Date: 20161227
  Receipt Date: 20170403
  Transmission Date: 20170830
  Serious: No
  Sender: FDA-Public Use
  Company Number: US-TEVA-720877USA

PATIENT
  Sex: Female

DRUGS (12)
  1. METOPROLOL. [Concomitant]
     Active Substance: METOPROLOL
  2. ALTACE [Concomitant]
     Active Substance: RAMIPRIL
  3. ATIVAN [Concomitant]
     Active Substance: LORAZEPAM
  4. SABRIL [Concomitant]
     Active Substance: VIGABATRIN
  5. NITROGLYCERIN. [Concomitant]
     Active Substance: NITROGLYCERIN
  6. GABITRIL [Suspect]
     Active Substance: TIAGABINE HYDROCHLORIDE
     Route: 065
  7. GABAPENTIN. [Concomitant]
     Active Substance: GABAPENTIN
  8. SABRIL [Suspect]
     Active Substance: VIGABATRIN
     Route: 048
     Dates: start: 20161026
  9. VIMPAT [Concomitant]
     Active Substance: LACOSAMIDE
  10. SYNTHROID [Concomitant]
     Active Substance: LEVOTHYROXINE SODIUM
  11. ESTRADIOL. [Concomitant]
     Active Substance: ESTRADIOL
  12. PERCOCET [Concomitant]
     Active Substance: ACETAMINOPHEN\OXYCODONE HYDROCHLORIDE

REACTIONS (7)
  - Eye disorder [Unknown]
  - Diplopia [Unknown]
  - Gait disturbance [Unknown]
  - Visual impairment [Unknown]
  - Fall [Unknown]
  - Thinking abnormal [Unknown]
  - Vision blurred [Unknown]
